FAERS Safety Report 5254522-4 (Version None)
Quarter: 2007Q1

REPORT INFORMATION
  Report Type: 
  Country: None (occurrence: None)
  Receive Date: 20070302
  Receipt Date: 20070219
  Transmission Date: 20070707
  Serious: Yes (Hospitalization)
  Sender: FDA-Public Use
  Company Number: DE-BRISTOL-MYERS SQUIBB COMPANY-13689336

PATIENT
  Age: 59 Year
  Sex: Male

DRUGS (12)
  1. CETUXIMAB [Suspect]
     Indication: NON-SMALL CELL LUNG CANCER
     Route: 040
     Dates: start: 20070124, end: 20070124
  2. CARBOPLATIN [Suspect]
     Indication: NON-SMALL CELL LUNG CANCER
     Route: 042
     Dates: start: 20070124, end: 20070124
  3. GEMCITABINE [Suspect]
     Indication: NON-SMALL CELL LUNG CANCER
     Route: 042
     Dates: start: 20070124, end: 20070124
  4. MST [Concomitant]
  5. DURAGESIC-100 [Concomitant]
     Route: 062
  6. VOLTAREN [Concomitant]
  7. NEXIUM [Concomitant]
  8. NOVALGIN [Concomitant]
     Route: 048
  9. SEVREDOL [Concomitant]
  10. PASPERTIN [Concomitant]
     Route: 048
  11. LACTULOSE [Concomitant]
  12. MOVICOL [Concomitant]

REACTIONS (1)
  - ARRHYTHMIA [None]
